FAERS Safety Report 4864847-X (Version None)
Quarter: 2005Q4

REPORT INFORMATION
  Report Type: 
  Country: None (occurrence: None)
  Receive Date: 20051201
  Receipt Date: 20050718
  Transmission Date: 20060501
  Serious: No
  Sender: FDA-Public Use
  Company Number: 2005PV000464

PATIENT
  Age: 59 Year
  Sex: Female
  Weight: 127.0072 kg

DRUGS (14)
  1. BYETTA [Suspect]
     Indication: DIABETES MELLITUS NON-INSULIN-DEPENDENT
     Dosage: SEE IMAGE
     Route: 058
     Dates: start: 20050714, end: 20050810
  2. BYETTA [Suspect]
     Indication: DIABETES MELLITUS NON-INSULIN-DEPENDENT
     Dosage: SEE IMAGE
     Route: 058
     Dates: start: 20050811, end: 20050815
  3. MOBIC [Concomitant]
  4. METFORMIN HCL [Concomitant]
  5. CALCIUM WITH VITAMIN D [Concomitant]
  6. ACTOS [Concomitant]
  7. LIPITOR [Concomitant]
  8. ASPIRIN ENTERIC COATED K.P. [Concomitant]
  9. DIURIL [Concomitant]
  10. BETAPACE [Concomitant]
  11. MICRO-K [Concomitant]
  12. VALIUM [Concomitant]
  13. FLORICAL [Concomitant]
  14. HYALAGEN INJECTION [Concomitant]

REACTIONS (13)
  - COUGH [None]
  - DECREASED APPETITE [None]
  - DYSPNOEA [None]
  - EARLY SATIETY [None]
  - FEELING JITTERY [None]
  - GASTROINTESTINAL DISORDER [None]
  - GASTROOESOPHAGEAL REFLUX DISEASE [None]
  - HYPERHIDROSIS [None]
  - NAUSEA [None]
  - OESOPHAGEAL INJURY [None]
  - RETCHING [None]
  - VOMITING [None]
  - WEIGHT DECREASED [None]
